FAERS Safety Report 9045365 (Version 1)
Quarter: 2013Q1

REPORT INFORMATION
  Report Type: Spontaneous
  Country: US (occurrence: US)
  Receive Date: 20130131
  Receipt Date: 20130131
  Transmission Date: 20140127
  Serious: No
  Sender: FDA-Public Use
  Company Number: US-ABBOTT-12P-163-1001845-00

PATIENT
  Age: 60 None
  Sex: Female
  Weight: 113.5 kg

DRUGS (6)
  1. HUMIRA [Suspect]
     Indication: PSORIASIS
     Route: 058
     Dates: start: 201209
  2. INSULIN [Concomitant]
     Indication: DIABETES MELLITUS
  3. UNKNOWN BLOOD PRESSURE MEDICATION (NON-ABBOTT) [Concomitant]
     Indication: HYPERTENSION
  4. UNKNOWN DEPRESSION MEDICATION (NON-ABBOTT) [Concomitant]
     Indication: DEPRESSION
  5. UNKNOWN BI-POLAR DISEASE MEDICATION (NON-ABBOTT) [Concomitant]
     Indication: BIPOLAR DISORDER
  6. METHOTREXATE [Concomitant]
     Indication: PSORIASIS

REACTIONS (4)
  - Weight increased [Not Recovered/Not Resolved]
  - Sinusitis [Not Recovered/Not Resolved]
  - Myalgia [Not Recovered/Not Resolved]
  - Dyspnoea [Recovered/Resolved]
